FAERS Safety Report 7864545-4 (Version None)
Quarter: 2011Q4

REPORT INFORMATION
  Report Type: 
  Country: None (occurrence: None)
  Receive Date: 20111028
  Receipt Date: 20111025
  Transmission Date: 20120403
  Serious: Yes (Other)
  Sender: FDA-Public Use
  Company Number: US-PFIZER INC-2011260479

PATIENT
  Sex: Female
  Weight: 46.3 kg

DRUGS (2)
  1. PREMARIN [Suspect]
     Dosage: UNK
  2. VYTORIN [Concomitant]
     Indication: MYOCARDIAL INFARCTION
     Dosage: 10/40 MG, DAILY

REACTIONS (1)
  - DEMENTIA [None]
